FAERS Safety Report 11357129 (Version 1)
Quarter: 2015Q3

REPORT INFORMATION
  Report Type: Spontaneous
  Country: US (occurrence: US)
  Receive Date: 20150803
  Receipt Date: 20150803
  Transmission Date: 20151125
  Serious: No
  Sender: FDA-Public Use
  Company Number: US-ELI_LILLY_AND_COMPANY-US201209000600

PATIENT
  Sex: Male

DRUGS (4)
  1. OLANZAPINE. [Suspect]
     Active Substance: OLANZAPINE
     Indication: SCHIZOPHRENIA, PARANOID TYPE
     Dosage: 5 MG, UNKNOWN
     Dates: start: 201206, end: 201207
  2. ZYPREXA [Suspect]
     Active Substance: OLANZAPINE
     Dosage: 15 MG, UNKNOWN
  3. ZYPREXA [Suspect]
     Active Substance: OLANZAPINE
     Indication: SCHIZOPHRENIA, PARANOID TYPE
     Dosage: 10 MG, UNKNOWN
     Dates: start: 2009
  4. ZYPREXA [Suspect]
     Active Substance: OLANZAPINE
     Dosage: 5 MG, UNKNOWN

REACTIONS (2)
  - Gastric disorder [Unknown]
  - Diarrhoea [Unknown]
